FAERS Safety Report 8484321-1 (Version None)
Quarter: 2012Q3

REPORT INFORMATION
  Report Type: 
  Country: None (occurrence: None)
  Receive Date: 20120703
  Receipt Date: 20120625
  Transmission Date: 20120928
  Serious: Yes (Other)
  Sender: FDA-Public Use
  Company Number: PHHY2011US66735

PATIENT
  Sex: Female

DRUGS (18)
  1. MONTELUKAST [Concomitant]
     Dosage: 10 MG, QHS
     Route: 048
  2. FUROSEMIDE [Concomitant]
     Dosage: 1 DF, PRN
  3. MOMETASONE FUROATE [Concomitant]
     Dosage: SPAY IN AFFECTED NOSTRIL, QD
  4. ARMODAFINIL [Concomitant]
     Dosage: 1 DF, QD
     Route: 048
  5. ERGOCALCIFEROL [Concomitant]
     Dosage: 1 DF, QW
  6. PREGABALIN [Concomitant]
     Dosage: 100 MG, TID
     Route: 048
  7. CELLCEPT [Concomitant]
     Indication: MULTIPLE SCLEROSIS
     Dosage: UNK UKN, UNK
     Dates: end: 20110213
  8. SYNTHROID [Concomitant]
     Dosage: 1 DF, QD
  9. GILENYA [Suspect]
     Indication: MULTIPLE SCLEROSIS
     Dosage: 0.5 MG, QD
     Route: 048
     Dates: start: 20110314
  10. POTASSIUM CHLORIDE [Concomitant]
     Dosage: 1 DF, PRN
     Route: 048
  11. LEVETIRACETAM [Concomitant]
     Dosage: 1000 MG, QHS
     Route: 048
  12. SOLU-MEDROL [Concomitant]
     Indication: MULTIPLE SCLEROSIS
     Dosage: UNK UKN, UNK
     Dates: start: 20110201
  13. TIZANIDINE HYDROCHLORIDE [Concomitant]
     Dosage: 3 DF, TID
     Route: 048
  14. FLUOXETINE [Concomitant]
     Dosage: 1 DF, QD
  15. LEVETIRACETAM [Concomitant]
     Dosage: 500 MG, UNK
     Route: 048
  16. PROZAC [Concomitant]
  17. MULTI-VITAMINS [Concomitant]
     Dosage: 1 DF, QD
     Route: 048
  18. NAPROXEN (ALEVE) [Concomitant]
     Dosage: UNK UKN, PRN
     Route: 048

REACTIONS (8)
  - DRUG-INDUCED LIVER INJURY [None]
  - BLOOD ALKALINE PHOSPHATASE INCREASED [None]
  - MEAN CELL HAEMOGLOBIN CONCENTRATION DECREASED [None]
  - ASPARTATE AMINOTRANSFERASE INCREASED [None]
  - LEUKOPENIA [None]
  - LIVER FUNCTION TEST ABNORMAL [None]
  - ALANINE AMINOTRANSFERASE INCREASED [None]
  - HAEMOGLOBIN DECREASED [None]
